FAERS Safety Report 25462238 (Version 1)
Quarter: 2025Q2

REPORT INFORMATION
  Report Type: Spontaneous
  Country: US (occurrence: None)
  Receive Date: 20250619
  Receipt Date: 20250619
  Transmission Date: 20250717
  Serious: Yes (Disabling)
  Sender: FDA-CTU
  Company Number: None

PATIENT
  Age: 58 Year
  Sex: Male
  Weight: 76.5 kg

DRUGS (2)
  1. MIRTAZAPINE [Suspect]
     Active Substance: MIRTAZAPINE
     Indication: Sleep disorder
     Dosage: OTHER QUANTITY : 0.5 TABLET(S);?FREQUENCY : AT BEDTIME;?
     Route: 048
     Dates: start: 20170801, end: 20190130
  2. BONE [Concomitant]

REACTIONS (32)
  - Gastrointestinal disorder [None]
  - Abdominal distension [None]
  - Eructation [None]
  - Frequent bowel movements [None]
  - Nonspecific reaction [None]
  - Dyspepsia [None]
  - Food intolerance [None]
  - Poor quality sleep [None]
  - Paraesthesia [None]
  - Flushing [None]
  - Chills [None]
  - Vision blurred [None]
  - Tinnitus [None]
  - Ear discomfort [None]
  - Sinus congestion [None]
  - Blood glucose fluctuation [None]
  - Dizziness [None]
  - Loss of consciousness [None]
  - Blood pressure fluctuation [None]
  - Brain fog [None]
  - Anxiety [None]
  - Body temperature fluctuation [None]
  - Chills [None]
  - Muscle spasms [None]
  - Dermatitis allergic [None]
  - Paraesthesia [None]
  - Agitation [None]
  - Panic disorder [None]
  - Confusional state [None]
  - Sinus operation [None]
  - Sinonasal obstruction [None]
  - Balance disorder [None]

NARRATIVE: CASE EVENT DATE: 20190301
